FAERS Safety Report 25567963 (Version 1)
Quarter: 2025Q3

REPORT INFORMATION
  Report Type: Spontaneous
  Country: US (occurrence: US)
  Receive Date: 20250716
  Receipt Date: 20250716
  Transmission Date: 20251020
  Serious: No
  Sender: NOVO NORDISK
  Company Number: US-NOVOPROD-1368561

PATIENT
  Age: 58 Year
  Sex: Female

DRUGS (1)
  1. OZEMPIC [Suspect]
     Active Substance: SEMAGLUTIDE
     Indication: Weight control
     Route: 058
     Dates: start: 20241001, end: 20250101

REACTIONS (6)
  - Acne [Recovered/Resolved]
  - Seborrhoea [Recovered/Resolved]
  - Lipoatrophy [Recovered/Resolved]
  - Leptin level decreased [Unknown]
  - Hunger [Recovered/Resolved]
  - Product use in unapproved indication [Unknown]
